FAERS Safety Report 6508956-8 (Version None)
Quarter: 2009Q4

REPORT INFORMATION
  Report Type: 
  Country: None (occurrence: None)
  Receive Date: 20091221
  Receipt Date: 20090831
  Transmission Date: 20100525
  Serious: No
  Sender: FDA-Public Use
  Company Number: US-ASTRAZENECA-2009SE10925

PATIENT
  Age: 66 Year
  Sex: Female

DRUGS (3)
  1. CRESTOR [Suspect]
     Indication: BLOOD CHOLESTEROL INCREASED
     Route: 048
  2. CRESTOR [Suspect]
     Route: 048
     Dates: start: 20090810
  3. SYNTHROID [Concomitant]

REACTIONS (2)
  - CHEST DISCOMFORT [None]
  - NOCTURIA [None]
